FAERS Safety Report 7548640-5 (Version None)
Quarter: 2011Q2

REPORT INFORMATION
  Report Type: 
  Country: None (occurrence: None)
  Receive Date: 20110524
  Receipt Date: 20110124
  Transmission Date: 20111010
  Serious: No
  Sender: FDA-Public Use
  Company Number: 026150

PATIENT
  Sex: Male
  Weight: 72.6 kg

DRUGS (4)
  1. CIMZIA [Suspect]
     Dosage: (400 MG 1X/MONTH SUBCUTANEOUS)
     Route: 058
     Dates: start: 20100101
  2. FLEXERIL [Concomitant]
  3. ZITHROMAX [Concomitant]
  4. LORTAB [Concomitant]

REACTIONS (3)
  - PNEUMONIA [None]
  - PYREXIA [None]
  - MUSCLE SPASMS [None]
